FAERS Safety Report 14147437 (Version 3)
Quarter: 2018Q1

REPORT INFORMATION
  Report Type: Report from Study
  Country: PT (occurrence: PT)
  Receive Date: 20171031
  Receipt Date: 20180319
  Transmission Date: 20180508
  Serious: Yes (Hospitalization, Other)
  Sender: FDA-Public Use
  Company Number: PT-TAIHO ONCOLOGY INC-JPTT171214

PATIENT
  Age: 61 Year
  Sex: Female
  Weight: 51.6 kg

DRUGS (4)
  1. OMEPRAZOLE SODIUM [Concomitant]
     Active Substance: OMEPRAZOLE SODIUM
     Indication: GASTRIC DISORDER
     Dosage: 20 MG, QD
     Route: 048
     Dates: start: 201305, end: 20170829
  2. ALPRAZOLAM. [Concomitant]
     Active Substance: ALPRAZOLAM
     Indication: HYPNOTHERAPY
     Dosage: 0.5 MG, QD
     Route: 048
     Dates: start: 20170715
  3. LONSURF [Suspect]
     Active Substance: TIPIRACIL HYDROCHLORIDE\TRIFLURIDINE
     Indication: ADENOCARCINOMA OF COLON
     Dosage: 50 MG (35 MG/M2) BID ORALLY ON DAYS 1-5 AND 8-12 OF EACH 28-DAY
     Route: 048
     Dates: start: 20170802, end: 20170813
  4. OMEPRAZOLE SODIUM [Concomitant]
     Active Substance: OMEPRAZOLE SODIUM
     Indication: PROPHYLAXIS
     Route: 065

REACTIONS (4)
  - Neutropenia [Recovered/Resolved]
  - Mixed liver injury [Not Recovered/Not Resolved]
  - Infection [Recovered/Resolved]
  - Malignant neoplasm progression [Not Recovered/Not Resolved]

NARRATIVE: CASE EVENT DATE: 20170825
